FAERS Safety Report 7318819-6 (Version None)
Quarter: 2011Q1

REPORT INFORMATION
  Report Type: 
  Country: None (occurrence: None)
  Receive Date: 20110228
  Receipt Date: 20101130
  Transmission Date: 20110831
  Serious: No
  Sender: FDA-Public Use
  Company Number: A0872351A

PATIENT
  Age: 51 Year
  Sex: Female

DRUGS (3)
  1. SUMATRIPTAN SUCCINATE [Suspect]
     Indication: MIGRAINE
     Dosage: 6MG AS REQUIRED
     Dates: start: 20090101
  2. NO CONCURRENT MEDICATION [Concomitant]
  3. SUMATRIPTAN SUCCINATE [Suspect]
     Dosage: 100MG AS REQUIRED
     Dates: start: 20090101

REACTIONS (2)
  - THERAPEUTIC RESPONSE DECREASED [None]
  - PRODUCT QUALITY ISSUE [None]
